FAERS Safety Report 20568618 (Version 1)
Quarter: 2022Q1

REPORT INFORMATION
  Report Type: Spontaneous
  Country: US (occurrence: None)
  Receive Date: 20220308
  Receipt Date: 20220308
  Transmission Date: 20220423
  Serious: Yes (Life-Threatening, Hospitalization)
  Sender: FDA-Public Use
  Company Number: None

PATIENT
  Age: 79 Year
  Sex: Male
  Weight: 97.98 kg

DRUGS (9)
  1. DEVICE [Suspect]
     Active Substance: DEVICE
     Dates: start: 20191125, end: 20200605
  2. MORPHINE [Suspect]
     Active Substance: MORPHINE
  3. FLOVONIX PAIN PUMP [Concomitant]
  4. LISINOPRIL [Concomitant]
     Active Substance: LISINOPRIL
  5. ROSUVASTATIN [Concomitant]
     Active Substance: ROSUVASTATIN
  6. TRAZADONE FOR SLEEP [Concomitant]
  7. PRIMIDONE AND CARVEDILOL FOR ESSENTIAL TREMORS [Concomitant]
  8. ASPIRIN [Concomitant]
     Active Substance: ASPIRIN
  9. TAMSULOSIN [Concomitant]
     Active Substance: TAMSULOSIN

REACTIONS (4)
  - Device infusion issue [None]
  - Drug withdrawal syndrome [None]
  - Device ineffective [None]
  - Intensive care [None]

NARRATIVE: CASE EVENT DATE: 20200326
